FAERS Safety Report 5760643-X (Version None)
Quarter: 2008Q2

REPORT INFORMATION
  Report Type: 
  Country: None (occurrence: None)
  Receive Date: 20080602
  Receipt Date: 20080526
  Transmission Date: 20081010
  Serious: Yes (Hospitalization, Other)
  Sender: FDA-Public Use
  Company Number: 2006-05-0240

PATIENT
  Age: 56 Year
  Sex: Male

DRUGS (4)
  1. PEG-INTRON [Suspect]
     Indication: HEPATITIS C
     Dates: start: 20020101, end: 20030401
  2. PEG-INTRON [Suspect]
     Indication: HEPATITIS C
     Dates: start: 20040101, end: 20050101
  3. RIBAVIRIN [Suspect]
     Indication: HEPATITIS C
     Dates: start: 20020101, end: 20030401
  4. RIBAVIRIN [Suspect]
     Indication: HEPATITIS C
     Dates: start: 20040101, end: 20050101

REACTIONS (29)
  - ABDOMINAL DISTENSION [None]
  - ALCOHOL USE [None]
  - AMMONIA INCREASED [None]
  - ANGER [None]
  - ASCITES [None]
  - ASTHENIA [None]
  - BLOOD GLUCOSE INCREASED [None]
  - CONFUSIONAL STATE [None]
  - CRYING [None]
  - DECREASED APPETITE [None]
  - DEPRESSION [None]
  - DIABETES MELLITUS [None]
  - DIARRHOEA [None]
  - FALL [None]
  - FEELING COLD [None]
  - FIBROSIS [None]
  - GASTROOESOPHAGEAL REFLUX DISEASE [None]
  - HEPATIC CIRRHOSIS [None]
  - HEPATOSPLENOMEGALY [None]
  - HUNGER [None]
  - HYPERSOMNIA [None]
  - POLYURIA [None]
  - PRURITUS [None]
  - PRURITUS GENERALISED [None]
  - RECTAL HAEMORRHAGE [None]
  - SOMNOLENCE [None]
  - STARING [None]
  - TRANSIENT ISCHAEMIC ATTACK [None]
  - WEIGHT DECREASED [None]
